FAERS Safety Report 11727492 (Version 2)
Quarter: 2015Q4

REPORT INFORMATION
  Report Type: Spontaneous
  Country: US (occurrence: US)
  Receive Date: 20151112
  Receipt Date: 20151130
  Transmission Date: 20160304
  Serious: Yes (Other)
  Sender: FDA-Public Use
  Company Number: US-PFIZER INC-2015374464

PATIENT
  Age: 52 Year
  Sex: Male
  Weight: 113 kg

DRUGS (10)
  1. ADVIL [Interacting]
     Active Substance: IBUPROFEN
     Dosage: HAD TWO
     Dates: start: 20151102
  2. AZITHROMYCIN [Interacting]
     Active Substance: AZITHROMYCIN ANHYDROUS
     Dosage: 250 MG (1 FOR REMAINING 3 DAYS), UNK
     Dates: start: 20151028, end: 20151030
  3. ADVIL [Interacting]
     Active Substance: IBUPROFEN
     Indication: HEADACHE
     Dosage: THREE TABLETS, SIX HOURS APART
     Dates: start: 20151024, end: 20151024
  4. ADVIL [Interacting]
     Active Substance: IBUPROFEN
     Dosage: HAD FIVE TABLETS
     Dates: start: 20151101, end: 20151101
  5. DOXYCYCLINE. [Interacting]
     Active Substance: DOXYCYCLINE
     Indication: INFECTION PROPHYLAXIS
     Dosage: 100 MG, ONE IN MORNING AND ONE IN AFTERNOON WITH FOOD
     Dates: start: 20151031
  6. AZITHROMYCIN [Interacting]
     Active Substance: AZITHROMYCIN ANHYDROUS
     Indication: INFLAMMATION
     Dosage: 250 MG 2 FIRST DAY, UNK
     Dates: start: 20151027, end: 20151027
  7. ZYRTEC [Suspect]
     Active Substance: CETIRIZINE HYDROCHLORIDE
     Indication: UPPER-AIRWAY COUGH SYNDROME
     Dosage: 10 MG, ONE A DAY
     Dates: start: 20151029
  8. ADVIL [Interacting]
     Active Substance: IBUPROFEN
     Indication: PAIN
     Dosage: TOOK SIX FOR THE DAY
     Dates: start: 20151031, end: 20151031
  9. AUGMENTIN [Interacting]
     Active Substance: AMOXICILLIN\CLAVULANATE POTASSIUM
     Indication: INFLAMMATION
     Dosage: 125 MG, 2X/DAY
     Dates: start: 20151021, end: 20151026
  10. TURMERIC ROOT [Concomitant]
     Indication: NONINFECTIVE GINGIVITIS

REACTIONS (6)
  - Drug ineffective [Not Recovered/Not Resolved]
  - Palpitations [Recovered/Resolved]
  - Heart rate increased [Recovered/Resolved]
  - Drug interaction [Unknown]
  - Cardiac flutter [Recovered/Resolved]
  - Chest pain [Recovered/Resolved]

NARRATIVE: CASE EVENT DATE: 2015
